FAERS Safety Report 5394348-4 (Version None)
Quarter: 2007Q3

REPORT INFORMATION
  Report Type: 
  Country: None (occurrence: None)
  Receive Date: 20070723
  Receipt Date: 20070525
  Transmission Date: 20080115
  Serious: No
  Sender: FDA-Public Use
  Company Number: A0653010A

PATIENT
  Sex: Female

DRUGS (9)
  1. AVANDIA [Suspect]
     Dosage: 8MG PER DAY
     Route: 048
     Dates: start: 20060201, end: 20070522
  2. GLYBURIDE [Concomitant]
  3. METOPROLOL TARTRATE [Concomitant]
  4. DIOVAN [Concomitant]
  5. HYDROCHLOROTHIAZIDE [Concomitant]
  6. ALPRAZOLAM [Concomitant]
  7. NEXIUM [Concomitant]
  8. XALATAN [Concomitant]
  9. COSOPT [Concomitant]

REACTIONS (5)
  - FATIGUE [None]
  - FLUID RETENTION [None]
  - MUSCULAR WEAKNESS [None]
  - PAIN [None]
  - WEIGHT INCREASED [None]
